FAERS Safety Report 17981928 (Version 2)
Quarter: 2020Q3

REPORT INFORMATION
  Report Type: Report from Study
  Country: JP (occurrence: JP)
  Receive Date: 20200706
  Receipt Date: 20200804
  Transmission Date: 20201103
  Serious: Yes (Other)
  Sender: FDA-Public Use
  Company Number: JP-ALEXION-A202009113

PATIENT

DRUGS (10)
  1. SOLIRIS [Suspect]
     Active Substance: ECULIZUMAB
     Dosage: 1200 MG, Q2W
     Route: 042
     Dates: start: 20200414, end: 20200526
  2. SOLIRIS [Suspect]
     Active Substance: ECULIZUMAB
     Indication: MYASTHENIA GRAVIS
     Dosage: 900 MG, QW
     Route: 042
     Dates: start: 20200303, end: 20200331
  3. DRUG NOT ADMINISTERED [Concomitant]
     Active Substance: UNSPECIFIED INGREDIENT
     Indication: HYPERTENSION
     Dosage: 40 MG, QD
     Route: 048
  4. PREDNISOLONE. [Concomitant]
     Active Substance: PREDNISOLONE
     Indication: MYASTHENIA GRAVIS
     Dosage: 5 MG, QD
     Route: 048
  5. PROGRAF [Concomitant]
     Active Substance: TACROLIMUS
     Dosage: 2 MG, QD
     Route: 048
     Dates: start: 2020, end: 20200526
  6. ATARAX?P                           /00058402/ [Concomitant]
     Active Substance: HYDROXYZINE HYDROCHLORIDE
     Indication: INSOMNIA
     Dosage: 25 MG, QD
     Route: 048
  7. PROGRAF [Concomitant]
     Active Substance: TACROLIMUS
     Indication: MYASTHENIA GRAVIS
     Dosage: 3 MG, QD
     Route: 048
  8. BISOPROLOL FUMARATE. [Concomitant]
     Active Substance: BISOPROLOL FUMARATE
     Indication: HYPERTENSION
     Dosage: 2.5 MG, QD
     Route: 048
  9. ALLOPURINOL. [Concomitant]
     Active Substance: ALLOPURINOL
     Indication: HYPERURICAEMIA
     Dosage: 100 MG, UNK
     Route: 065
  10. DRUG NOT ADMINISTERED [Concomitant]
     Active Substance: UNSPECIFIED INGREDIENT
     Indication: INSOMNIA
     Dosage: 15 MG, QD
     Route: 048

REACTIONS (2)
  - Drug ineffective [Unknown]
  - Myasthenia gravis [Unknown]

NARRATIVE: CASE EVENT DATE: 20200512
